FAERS Safety Report 14525592 (Version 2)
Quarter: 2018Q2

REPORT INFORMATION
  Report Type: Spontaneous
  Country: JP (occurrence: JP)
  Receive Date: 20180213
  Receipt Date: 20180422
  Transmission Date: 20180711
  Serious: Yes (Hospitalization, Other)
  Sender: FDA-Public Use
  Company Number: JP-APOTEX-2018AP006457

PATIENT

DRUGS (2)
  1. PAXIL [Suspect]
     Active Substance: PAROXETINE HYDROCHLORIDE
     Dosage: UNK
     Route: 048
  2. CICLOSPORIN [Concomitant]
     Active Substance: CYCLOSPORINE
     Dosage: UNK

REACTIONS (10)
  - Delusion [Unknown]
  - Pseudologia [Unknown]
  - Anger [Unknown]
  - Bipolar disorder [Unknown]
  - Activation syndrome [Unknown]
  - Antisocial behaviour [Unknown]
  - Suicidal ideation [Unknown]
  - Abnormal behaviour [Unknown]
  - Pyromania [Unknown]
  - Agitation [Unknown]

NARRATIVE: CASE EVENT DATE: 200305
